FAERS Safety Report 10024845 (Version 5)
Quarter: 2014Q2

REPORT INFORMATION
  Report Type: Spontaneous
  Country: US (occurrence: US)
  Receive Date: 20140320
  Receipt Date: 20140507
  Transmission Date: 20141212
  Serious: Yes (Death, Hospitalization, Other)
  Sender: FDA-Public Use
  Company Number: US-BAXTER-2014BAX011952

PATIENT
  Age: 62 Year
  Sex: Male

DRUGS (2)
  1. DIANEAL LOW CALCIUM [Suspect]
     Indication: PERITONEAL DIALYSIS
     Route: 033
     Dates: start: 201401, end: 20140304
  2. DIANEAL LOW CALCIUM [Suspect]
     Indication: PERITONEAL DIALYSIS
     Route: 033
     Dates: start: 201401, end: 20140304

REACTIONS (13)
  - Staphylococcal infection [Fatal]
  - Respiratory failure [Fatal]
  - Nephropathy [Fatal]
  - Pericarditis [Recovering/Resolving]
  - Peritoneal dialysis complication [Unknown]
  - Sepsis [Unknown]
  - Wound abscess [Unknown]
  - Arthritis infective [Unknown]
  - Arthritis bacterial [Unknown]
  - Staphylococcal abscess [Unknown]
  - Hypoglycaemia [Unknown]
  - Hypocalcaemia [Unknown]
  - Hypoperfusion [Unknown]
